FAERS Safety Report 19499492 (Version 2)
Quarter: 2021Q3

REPORT INFORMATION
  Report Type: Report from Study
  Country: GB (occurrence: GB)
  Receive Date: 20210707
  Receipt Date: 20210809
  Transmission Date: 20211014
  Serious: Yes (Death)
  Sender: FDA-Public Use
  Company Number: GB-CELLTRION INC.-2021GB009060

PATIENT

DRUGS (25)
  1. TRASTUZUMAB (UNKNOWN) [Suspect]
     Active Substance: TRASTUZUMAB
     Indication: BREAST CANCER METASTATIC
     Dosage: 588 MG EVERY 3 WEEKS (PHARMACEUTICAL DOSE FORM: INFUSION, SOLUTION)
     Route: 042
     Dates: start: 20191114
  2. DOCETAXEL. [Suspect]
     Active Substance: DOCETAXEL
     Indication: BREAST CANCER METASTATIC
     Dosage: 110 MG EVERY 3 WEEKS (CUMULATIVE DOSE: 277.61905 MG)
     Route: 042
     Dates: start: 20160609, end: 20160919
  3. PERTUZUMAB. [Suspect]
     Active Substance: PERTUZUMAB
     Indication: BREAST CANCER METASTATIC
     Dosage: 420 MG EVERY 3 WEEKS
     Route: 042
     Dates: start: 20160608
  4. DOMPERIDONE [Concomitant]
     Active Substance: DOMPERIDONE
     Dosage: 10 MG, 3X/DAY 0.33/DAY
     Route: 048
     Dates: start: 20160518
  5. ONDANSETRON [Concomitant]
     Active Substance: ONDANSETRON
     Dosage: 8 MG, 2X/DAY FREQ: 0.5 D;
     Route: 048
     Dates: start: 20160518
  6. PERTUZUMAB. [Suspect]
     Active Substance: PERTUZUMAB
     Dosage: 840 MG EVERY 3 WEEKS (CUMULATIVE DOSE: 3000.0 MG)
     Route: 042
     Dates: start: 20160518, end: 20160518
  7. BENZYDAMINE HYDROCHLORIDE [Concomitant]
     Active Substance: BENZYDAMINE HYDROCHLORIDE
     Dosage: 10 ML, 4X/DAY/0.25 DAY
     Route: 061
     Dates: start: 20160518
  8. CYSTOPURIN [POTASSIUM CITRATE] [Concomitant]
     Indication: CYSTITIS
     Dosage: 3 MG (FREQUENCY: 0.33 DAY)
     Route: 048
     Dates: start: 20160918, end: 20160919
  9. ZOPICLONE [Concomitant]
     Active Substance: ZOPICLONE
     Indication: INSOMNIA
     Dosage: 3.75 MG (FREQUENCY: 0.33 DAY)
     Route: 048
     Dates: start: 2016
  10. ANASTROZOLE. [Concomitant]
     Active Substance: ANASTROZOLE
     Dosage: 1 MG, QD
     Route: 048
     Dates: start: 20160919, end: 20180426
  11. CAPECITABINE. [Concomitant]
     Active Substance: CAPECITABINE
     Indication: PRODUCT USED FOR UNKNOWN INDICATION
     Dosage: 2300 MG ONCE EVERY 3 WEEKS
     Route: 042
  12. AMOXICILLIN. [Concomitant]
     Active Substance: AMOXICILLIN
     Dosage: 250 MG (FREQ:.33 D;)
     Route: 048
     Dates: start: 201701, end: 201701
  13. CHLORAMPHENICOL [Concomitant]
     Active Substance: CHLORAMPHENICOL
     Indication: LACRIMATION INCREASED
     Dosage: 1 DROP
     Route: 047
     Dates: start: 201610
  14. AMOXICILLIN. [Concomitant]
     Active Substance: AMOXICILLIN
     Indication: OROPHARYNGEAL PAIN
     Dosage: 250 MG, 3X/DAY 0.33/DAY
     Route: 048
     Dates: start: 201701, end: 201701
  15. OMEPRAZOLE. [Concomitant]
     Active Substance: OMEPRAZOLE
     Dosage: 20 MG, QD (PHARMACEUTICAL DOSE FORM: 245)
     Route: 048
     Dates: start: 20160627
  16. PARACETAMOL [Concomitant]
     Active Substance: ACETAMINOPHEN
     Dosage: 1 G
     Route: 048
     Dates: start: 20160518
  17. TRASTUZUMAB (UNKNOWN) [Suspect]
     Active Substance: TRASTUZUMAB
     Dosage: 600 MG EVERY 3 WEEKS (CUMULATIVE DOSE: 2142.8572 MG)
     Route: 042
     Dates: start: 20160518
  18. DOCETAXEL. [Suspect]
     Active Substance: DOCETAXEL
     Dosage: 140 MG EVERY 3 WEEKS
     Route: 042
     Dates: start: 20160519, end: 20160519
  19. RANITIDINE. [Concomitant]
     Active Substance: RANITIDINE
     Dosage: 150 MG (FREQUENCY: 0.25 DAY) (PHARMACEUTICAL DOSE FORM: 245)
     Route: 048
     Dates: start: 20160518
  20. EXEMESTANE. [Concomitant]
     Active Substance: EXEMESTANE
     Dosage: 25 MG, QD
     Route: 048
     Dates: start: 20180427, end: 20190206
  21. TRASTUZUMAB EMTANSINE [Concomitant]
     Active Substance: ADO-TRASTUZUMAB EMTANSINE
     Dosage: 280 MG, Q2WEEKS
     Route: 042
     Dates: start: 20190214, end: 20190919
  22. CALCIUM CARBONATE. [Concomitant]
     Active Substance: CALCIUM CARBONATE
     Dosage: 680 MG
     Route: 048
     Dates: start: 20160518
  23. LOPERAMIDE [Concomitant]
     Active Substance: LOPERAMIDE
     Dosage: 2 MG
     Route: 048
     Dates: start: 20160518
  24. TETRACYCLIN [Concomitant]
     Active Substance: TETRACYCLINE HYDROCHLORIDE
     Indication: LACRIMATION INCREASED
     Dosage: 250 MG, 3X/DAY FREQ:0.33 D;
     Route: 048
     Dates: start: 20170327
  25. TRIMETHOPRIM. [Concomitant]
     Active Substance: TRIMETHOPRIM
     Indication: CYSTITIS
     Dosage: 200 MG, 2X/DAY FREQ:0.5 D;
     Route: 048
     Dates: start: 20160919, end: 20160922

REACTIONS (2)
  - Disease progression [Fatal]
  - Fatigue [Recovered/Resolved]

NARRATIVE: CASE EVENT DATE: 201608
